FAERS Safety Report 13131055 (Version 1)
Quarter: 2017Q1

REPORT INFORMATION
  Report Type: Spontaneous
  Country: US (occurrence: US)
  Receive Date: 20170119
  Receipt Date: 20170119
  Transmission Date: 20170428
  Serious: No
  Sender: FDA-Public Use
  Company Number: PHEH2017US001757

PATIENT

DRUGS (2)
  1. EXJADE [Suspect]
     Active Substance: DEFERASIROX
     Indication: PRODUCT USED FOR UNKNOWN INDICATION
     Dosage: 1 DF, QD
     Route: 065
  2. EXJADE [Suspect]
     Active Substance: DEFERASIROX
     Dosage: 2 DF, QD
     Route: 065

REACTIONS (2)
  - Faeces discoloured [Unknown]
  - Melaena [Unknown]
